FAERS Safety Report 10872537 (Version 2)
Quarter: 2015Q1

REPORT INFORMATION
  Report Type: Spontaneous
  Country: US (occurrence: US)
  Receive Date: 20150227
  Receipt Date: 20150324
  Transmission Date: 20150721
  Serious: No
  Sender: FDA-Public Use
  Company Number: US-ASTRAZENECA-2015SE15892

PATIENT
  Sex: Female
  Weight: 47.2 kg

DRUGS (1)
  1. SYMBICORT [Suspect]
     Active Substance: BUDESONIDE\FORMOTEROL FUMARATE DIHYDRATE
     Indication: DYSPNOEA
     Dosage: 80/4.5MCG, 2 PUFFS IN THE MORNING AND AT NIGHT
     Route: 055
     Dates: start: 20150214

REACTIONS (4)
  - Off label use [Not Recovered/Not Resolved]
  - Weight decreased [Unknown]
  - Dysphonia [Unknown]
  - Intentional product misuse [Unknown]
